FAERS Safety Report 17058366 (Version 1)
Quarter: 2019Q4

REPORT INFORMATION
  Report Type: Spontaneous
  Country: ES (occurrence: ES)
  Receive Date: 20191121
  Receipt Date: 20191121
  Transmission Date: 20200122
  Serious: Yes (Hospitalization)
  Sender: FDA-Public Use
  Company Number: ES-JNJFOC-20191119278

PATIENT
  Age: 47 Year
  Sex: Female

DRUGS (1)
  1. INFLIXIMAB, RECOMBINANT [Suspect]
     Active Substance: INFLIXIMAB
     Indication: INFLAMMATORY BOWEL DISEASE
     Dosage: IN TOTAL
     Route: 042
     Dates: start: 20191029, end: 20191029

REACTIONS (2)
  - Chest pain [Recovered/Resolved]
  - Electrocardiogram ST segment elevation [Recovered/Resolved]

NARRATIVE: CASE EVENT DATE: 20191029
